FAERS Safety Report 5423760-X (Version None)
Quarter: 2007Q3

REPORT INFORMATION
  Report Type: 
  Country: None (occurrence: None)
  Receive Date: 20070727
  Receipt Date: 20040916
  Transmission Date: 20080115
  Serious: Yes (Hospitalization)
  Sender: FDA-Public Use
  Company Number: THYM-10289

PATIENT
  Sex: Female

DRUGS (6)
  1. CYCLOPHOSPHAMIDE [Suspect]
     Indication: CHEMOTHERAPY
     Dosage: 2
     Dates: start: 20040908, end: 20040908
  2. NEUPOGEN [Concomitant]
  3. DIFLUCAN [Concomitant]
  4. LEVAQUIN [Concomitant]
  5. ACYCLOVIR [Concomitant]
  6. MORPHINE [Concomitant]

REACTIONS (3)
  - DEHYDRATION [None]
  - HYPOTENSION [None]
  - NEUTROPENIA [None]
